FAERS Safety Report 8543710-7 (Version None)
Quarter: 2012Q3

REPORT INFORMATION
  Report Type: 
  Country: None (occurrence: None)
  Receive Date: 20120717
  Receipt Date: 20120706
  Transmission Date: 20120928
  Serious: Yes (Other)
  Sender: FDA-Public Use
  Company Number: 2012-3155

PATIENT
  Age: 43 Year
  Sex: Female

DRUGS (8)
  1. SOMATULINE DEPOT [Suspect]
     Indication: PRODUCT USED FOR UNKNOWN INDICATION
     Dosage: 60 MG (60 MG, 1 IN 28 D), SUBCUTANEOUS
     Route: 058
     Dates: start: 20120411
  2. MAXALT -MCT (RIZATRIPTAN BENZOATE) [Concomitant]
  3. GLUCAGON IM (GLUCAGON) [Concomitant]
  4. NITROFURANTOIN [Concomitant]
  5. PREDNISONE [Concomitant]
  6. ADVIL PM (DIPHENHYDRAMINE, COMBINATIONS) [Concomitant]
  7. AMITRIPTLINE HYDROCHLORIDE TAB [Concomitant]
  8. GLUCOSE [Concomitant]

REACTIONS (3)
  - CONVULSION [None]
  - BLOOD GLUCOSE DECREASED [None]
  - OFF LABEL USE [None]
